FAERS Safety Report 20529892 (Version 1)
Quarter: 2022Q1

REPORT INFORMATION
  Report Type: Spontaneous
  Country: US (occurrence: US)
  Receive Date: 20220301
  Receipt Date: 20220301
  Transmission Date: 20220424
  Serious: No
  Sender: FDA-Public Use
  Company Number: US-BRISTOL-MYERS SQUIBB COMPANY-BMS-2022-022013

PATIENT
  Sex: Male

DRUGS (1)
  1. ELIQUIS [Suspect]
     Active Substance: APIXABAN
     Indication: Product used for unknown indication
     Dosage: DAILY NOT SURE
     Route: 048

REACTIONS (10)
  - Lymphoedema [Unknown]
  - Contusion [Unknown]
  - Constipation [Unknown]
  - Fluid retention [Unknown]
  - Pain [Unknown]
  - Diarrhoea [Unknown]
  - Bowel movement irregularity [Unknown]
  - Cough [Recovering/Resolving]
  - General physical health deterioration [Unknown]
  - Respiratory symptom [Recovering/Resolving]

NARRATIVE: CASE EVENT DATE: 20210101
